FAERS Safety Report 20123651 (Version 1)
Quarter: 2021Q4

REPORT INFORMATION
  Report Type: Spontaneous
  Country: CN (occurrence: CN)
  Receive Date: 20211129
  Receipt Date: 20211129
  Transmission Date: 20220303
  Serious: Yes (Other)
  Sender: FDA-Public Use
  Company Number: CN-009507513-2111CHN008458

PATIENT
  Age: 90 Year
  Sex: Female
  Weight: 34 kg

DRUGS (2)
  1. INVANZ [Suspect]
     Active Substance: ERTAPENEM SODIUM
     Indication: Symptomatic treatment
     Dosage: 1 G, QD
     Route: 041
     Dates: start: 20211101, end: 20211103
  2. COMPOUND AMINO ACID INJECTION (18AA-IV) [Concomitant]
     Indication: Nutritional supplementation
     Dosage: 8.7 G, QD
     Route: 041
     Dates: start: 20211101, end: 20211108

REACTIONS (1)
  - Dementia [Recovered/Resolved]

NARRATIVE: CASE EVENT DATE: 20211102
